FAERS Safety Report 15744003 (Version 1)
Quarter: 2018Q4

REPORT INFORMATION
  Report Type: Spontaneous
  Country: FR (occurrence: FR)
  Receive Date: 20181220
  Receipt Date: 20181220
  Transmission Date: 20190205
  Serious: Yes (Death)
  Sender: FDA-Public Use
  Company Number: FR-ACCORD-096587

PATIENT
  Age: 92 Year
  Sex: Male
  Weight: 90 kg

DRUGS (12)
  1. LYSANXIA [Concomitant]
     Active Substance: PRAZEPAM
     Dosage: 15 MG / ML ORAL DROPS SOLUTION
     Route: 048
  2. PERINDOPRIL/PERINDOPRIL ERBUMINE [Concomitant]
     Route: 048
  3. NORSET [Concomitant]
     Active Substance: MIRTAZAPINE
     Dosage: 15 MG, ORODISPERSIBLE TABLET
     Route: 048
  4. CLOZAPINE. [Suspect]
     Active Substance: CLOZAPINE
     Indication: DEMENTIA ALZHEIMER^S TYPE
     Route: 048
  5. TIAPRIDAL [Suspect]
     Active Substance: TIAPRIDE HYDROCHLORIDE
     Indication: AGITATION
     Dosage: 5 MG / DROP, ORAL DROPS SOLUTION
     Route: 048
     Dates: start: 20170205
  6. LOXAPINE. [Suspect]
     Active Substance: LOXAPINE
     Indication: AGITATION
     Route: 030
  7. MEMANTINE HYDROCHLORIDE. [Concomitant]
     Active Substance: MEMANTINE HYDROCHLORIDE
     Route: 048
  8. CERIS [Concomitant]
     Active Substance: TROSPIUM CHLORIDE
     Dosage: 20 MG, COATED TABLET
     Route: 048
  9. DIGOXINE NATIVELLE [Concomitant]
     Active Substance: DIGOXIN
     Dosage: 0.25 MG TABLETS
     Route: 048
  10. REPAGLINIDE. [Concomitant]
     Active Substance: REPAGLINIDE
     Route: 048
  11. PRADAXA [Concomitant]
     Active Substance: DABIGATRAN ETEXILATE MESYLATE
     Dosage: 110 MG HARD CAPSULE
     Route: 048
  12. LASILIX RETARD [Concomitant]
     Active Substance: FUROSEMIDE
     Dosage: 60 MG CAPSULE
     Route: 048

REACTIONS (1)
  - Coma [Fatal]

NARRATIVE: CASE EVENT DATE: 20170706
